FAERS Safety Report 5451068-5 (Version None)
Quarter: 2007Q3

REPORT INFORMATION
  Report Type: 
  Country: None (occurrence: None)
  Receive Date: 20070911
  Receipt Date: 20070828
  Transmission Date: 20080115
  Serious: Yes (Death, Hospitalization, Disabling, Other)
  Sender: FDA-Public Use
  Company Number: 2007-00748

PATIENT
  Age: 83 Year
  Sex: Female
  Weight: 38 kg

DRUGS (12)
  1. VELCADE [Suspect]
     Indication: MULTIPLE MYELOMA
     Dosage: 1.30 MG/M2; 1.00 MG/M2,
     Dates: start: 20070223, end: 20070305
  2. VELCADE [Suspect]
     Indication: MULTIPLE MYELOMA
     Dosage: 1.30 MG/M2; 1.00 MG/M2,
     Dates: start: 20030323, end: 20070416
  3. DECADRON [Suspect]
     Indication: MULTIPLE MYELOMA
     Dosage: 20.00 MG,
     Dates: start: 20070223, end: 20070416
  4. BAKTAR (SULFAMETHOXAZOLE, TRIMETHOPRIM) [Concomitant]
  5. DIFLUCAN [Concomitant]
  6. MUCOSTA (REBAMIPIDE) [Concomitant]
  7. POLYMYXIN B SULFATE (POLYMYXIN B SULFATE) [Concomitant]
  8. OMEPRAL (OMEPRAZOLE) [Concomitant]
  9. MAGNESIUM OXIDE (MAGNESIUM OXIDE) [Concomitant]
  10. LAXOBERON (SODIUM PICOSULFATE) [Concomitant]
  11. URSO (URSODEOXYCHOLIC ACID) [Concomitant]
  12. PROMAX (POLAPREZINC) [Concomitant]

REACTIONS (13)
  - ABDOMINAL DISTENSION [None]
  - ASCITES [None]
  - DISEASE PROGRESSION [None]
  - HYPOAESTHESIA [None]
  - HYPONATRAEMIA [None]
  - LIVER DISORDER [None]
  - NEOPLASM PROGRESSION [None]
  - NERVE INJURY [None]
  - NEUROPATHY [None]
  - OEDEMA PERIPHERAL [None]
  - PLATELET COUNT DECREASED [None]
  - PLEURAL EFFUSION [None]
  - VOLVULUS [None]
